FAERS Safety Report 12287111 (Version 2)
Quarter: 2016Q3

REPORT INFORMATION
  Report Type: Other
  Country: SE (occurrence: SE)
  Receive Date: 20160420
  Receipt Date: 20160715
  Transmission Date: 20161109
  Serious: Yes (Hospitalization)
  Sender: FDA-Public Use
  Company Number: SE-HQ SPECIALTY-SE-2016INT000185

PATIENT
  Age: 5 Year
  Sex: Male

DRUGS (1)
  1. DEXMEDETOMIDINE HYDROCHLORIDE. [Suspect]
     Active Substance: DEXMEDETOMIDINE HYDROCHLORIDE
     Indication: SEDATIVE THERAPY
     Dosage: 0.45 ML, UNK
     Route: 045
     Dates: start: 20150323, end: 20150323

REACTIONS (5)
  - Product use issue [Unknown]
  - Urinary incontinence [Recovered/Resolved]
  - Loss of consciousness [Recovered/Resolved]
  - Drug administered to patient of inappropriate age [Unknown]
  - Seizure [Recovered/Resolved]

NARRATIVE: CASE EVENT DATE: 20150323
